FAERS Safety Report 12758298 (Version 1)
Quarter: 2016Q3

REPORT INFORMATION
  Report Type: Spontaneous
  Country: US (occurrence: US)
  Receive Date: 20160916
  Receipt Date: 20160916
  Transmission Date: 20161109
  Serious: Yes (Other)
  Sender: FDA-Public Use
  Company Number: None

PATIENT
  Age: 81 Year
  Sex: Female
  Weight: 54 kg

DRUGS (3)
  1. VITAMIN B [Concomitant]
     Active Substance: VITAMIN B
  2. ASPIRIN. [Concomitant]
     Active Substance: ASPIRIN
  3. DONEPEZIL. [Suspect]
     Active Substance: DONEPEZIL
     Indication: DEMENTIA
     Route: 048
     Dates: start: 20160909, end: 20160916

REACTIONS (10)
  - Dyspnoea [None]
  - Musculoskeletal disorder [None]
  - Nausea [None]
  - Headache [None]
  - Pain [None]
  - Musculoskeletal pain [None]
  - Chest pain [None]
  - Asthenia [None]
  - Fatigue [None]
  - Vomiting [None]

NARRATIVE: CASE EVENT DATE: 20160916
